FAERS Safety Report 7356053-4 (Version None)
Quarter: 2011Q1

REPORT INFORMATION
  Report Type: 
  Country: None (occurrence: None)
  Receive Date: 20110316
  Receipt Date: 20110309
  Transmission Date: 20110831
  Serious: Yes (Other)
  Sender: FDA-Public Use
  Company Number: CA-ELI_LILLY_AND_COMPANY-CA201103002903

PATIENT
  Sex: Male

DRUGS (5)
  1. ZYPREXA [Suspect]
     Dosage: 7.5 MG, 2/D
     Dates: start: 20060717
  2. EFFEXOR [Concomitant]
  3. LIPIDIL [Concomitant]
  4. SYNTHROID [Concomitant]
  5. ZYPREXA [Suspect]
     Dosage: 5 MG, UNK
     Dates: start: 20051219

REACTIONS (3)
  - DIABETES MELLITUS [None]
  - DYSPEPSIA [None]
  - BLINDNESS [None]
